FAERS Safety Report 14271243 (Version 2)
Quarter: 2017Q4

REPORT INFORMATION
  Report Type: Spontaneous
  Country: IL (occurrence: IL)
  Receive Date: 20171211
  Receipt Date: 20171215
  Transmission Date: 20180321
  Serious: Yes (Other)
  Sender: FDA-Public Use
  Company Number: IL-BAYER-2017-235414

PATIENT
  Age: 18 Year
  Sex: Female

DRUGS (3)
  1. YAZ [Suspect]
     Active Substance: DROSPIRENONE\ETHINYL ESTRADIOL
     Indication: ACNE
     Dosage: UNK
     Route: 048
     Dates: start: 201606
  2. MELIANE [Suspect]
     Active Substance: ETHINYL ESTRADIOL\GESTODENE
     Indication: MENORRHAGIA
     Dosage: UNK
     Route: 048
     Dates: start: 2015, end: 2015
  3. YAZ [Suspect]
     Active Substance: DROSPIRENONE\ETHINYL ESTRADIOL
     Indication: HIRSUTISM

REACTIONS (6)
  - Product use in unapproved indication [None]
  - Off label use [None]
  - Ovarian cyst [Recovered/Resolved]
  - Acne [None]
  - Procedural pain [Not Recovered/Not Resolved]
  - Hirsutism [None]

NARRATIVE: CASE EVENT DATE: 2015
